FAERS Safety Report 7235626-3 (Version None)
Quarter: 2011Q1

REPORT INFORMATION
  Report Type: 
  Country: None (occurrence: None)
  Receive Date: 20110110
  Receipt Date: 20110103
  Transmission Date: 20110831
  Serious: Yes (Other)
  Sender: FDA-Public Use
  Company Number: DSA_44607_2011

PATIENT
  Sex: Female
  Weight: 42.1845 kg

DRUGS (2)
  1. XENAZINE [Suspect]
     Indication: DYSTONIA
     Dosage: (25 MG TID ORAL)
     Route: 048
     Dates: start: 20101101, end: 20101231
  2. BACLOFEN [Concomitant]

REACTIONS (9)
  - MUSCULOSKELETAL STIFFNESS [None]
  - CHEST PAIN [None]
  - HEART RATE INCREASED [None]
  - ACTIVITIES OF DAILY LIVING IMPAIRED [None]
  - DYSPHAGIA [None]
  - COUGH [None]
  - OESOPHAGEAL OEDEMA [None]
  - RESTLESSNESS [None]
  - GAIT DISTURBANCE [None]
